FAERS Safety Report 6725285-8 (Version None)
Quarter: 2010Q2

REPORT INFORMATION
  Report Type: 
  Country: None (occurrence: None)
  Receive Date: 20100514
  Receipt Date: 20100505
  Transmission Date: 20101027
  Serious: Yes (Hospitalization)
  Sender: FDA-Public Use
  Company Number: IT-EISAI INC.-E3810-03779-SPO-IT

PATIENT
  Sex: Female

DRUGS (8)
  1. PARIET (RABEPRAZOLE) [Suspect]
     Indication: HYPERCHLORHYDRIA
     Dosage: UNKNOWN
     Route: 048
     Dates: start: 20100504, end: 20100504
  2. ATENOLOL [Concomitant]
     Route: 065
  3. RAMIPRIL [Concomitant]
     Indication: HYPERTENSION
     Route: 065
  4. CLONIDINE [Concomitant]
     Route: 062
  5. MOPADAY [Concomitant]
     Route: 065
  6. GLIMEPIRIDE [Concomitant]
     Indication: DIABETES MELLITUS
     Route: 065
  7. KETOPROFEN LYSINE [Concomitant]
     Route: 048
  8. ACETYLSALICYLIC ACID [Concomitant]
     Route: 065

REACTIONS (6)
  - CONFUSIONAL STATE [None]
  - HYPERHIDROSIS [None]
  - LOCALISED OEDEMA [None]
  - PRESYNCOPE [None]
  - PRURITUS [None]
  - TREMOR [None]
